FAERS Safety Report 8737906 (Version 2)
Quarter: 2013Q4

REPORT INFORMATION
  Report Type: Report from Study
  Country: JP (occurrence: JP)
  Receive Date: 20120823
  Receipt Date: 20131031
  Transmission Date: 20140711
  Serious: Yes (Hospitalization, Other)
  Sender: FDA-Public Use
  Company Number: JP-009507513-2012SP035002

PATIENT
  Age: 54 Year
  Sex: Female
  Weight: 58 kg

DRUGS (14)
  1. PEGINTERFERON ALFA-2B [Suspect]
     Indication: HEPATITIS C
     Dosage: 1.38 ?G/KG, QW
     Route: 058
     Dates: start: 20120411
  2. REBETOL [Suspect]
     Indication: HEPATITIS C
     Dosage: 600 MG, QD
     Route: 048
     Dates: start: 20120411, end: 20120425
  3. REBETOL [Suspect]
     Dosage: 200 MG, QD
     Route: 048
     Dates: start: 20120426
  4. TELAVIC [Suspect]
     Indication: HEPATITIS C
     Dosage: 2250 MG, QD
     Route: 048
     Dates: start: 20120411
  5. THYRADIN [Concomitant]
     Indication: HYPOTHYROIDISM
     Dosage: 100 MICROGRAM, QD
     Route: 048
  6. CEPHARANTHINE [Concomitant]
     Indication: ALOPECIA AREATA
     Dosage: 4 MG, QD
     Route: 048
  7. ALLELOCK [Concomitant]
     Indication: PRODUCT USED FOR UNKNOWN INDICATION
     Dosage: DRUG FORM: UNKNOWN
     Route: 048
     Dates: start: 20120413
  8. NEOMALLERMIN TR [Concomitant]
     Indication: PRODUCT USED FOR UNKNOWN INDICATION
     Dosage: DRUG FORM: UNKNOWN
     Route: 048
     Dates: start: 20120413
  9. ELOCON [Concomitant]
     Indication: PRODUCT USED FOR UNKNOWN INDICATION
     Dosage: DOSE: UNKNOWN
     Route: 061
     Dates: start: 20120413
  10. EURAX [Concomitant]
     Indication: PRODUCT USED FOR UNKNOWN INDICATION
     Dosage: DOSE: UNKNOWN
     Route: 061
     Dates: start: 20120413
  11. ATARAX (HYDROXYZINE HYDROCHLORIDE) [Concomitant]
     Indication: PRODUCT USED FOR UNKNOWN INDICATION
     Dosage: DRUG FORM: UNKNOWN
     Route: 048
     Dates: start: 20120416
  12. ASCORBIC ACID (+) VITAMIN B (UNSPECIFIED) [Concomitant]
     Indication: PRODUCT USED FOR UNKNOWN INDICATION
     Dosage: DRUG FORM: UNKNOWN
     Route: 048
     Dates: start: 20120419
  13. LOCOID [Concomitant]
     Indication: PRODUCT USED FOR UNKNOWN INDICATION
     Dosage: DOSE: UNKNOWN
     Route: 065
     Dates: start: 20120423
  14. ALLOPURINOL [Concomitant]
     Indication: HYPERURICAEMIA
     Dosage: UNK UNK, UNKNOWN
     Route: 065
     Dates: start: 20120530

REACTIONS (2)
  - Toxic skin eruption [Recovered/Resolved]
  - Toxic skin eruption [Not Recovered/Not Resolved]
